FAERS Safety Report 5719552-4 (Version None)
Quarter: 2008Q2

REPORT INFORMATION
  Report Type: 
  Country: None (occurrence: None)
  Receive Date: 20080428
  Receipt Date: 20080415
  Transmission Date: 20081010
  Serious: Yes (Congenital Anomaly)
  Sender: FDA-Public Use
  Company Number: A0650990A

PATIENT
  Sex: Female

DRUGS (5)
  1. PAXIL CR [Suspect]
     Indication: DEPRESSION
     Dosage: 37.5MG PER DAY
     Dates: start: 20060101, end: 20070101
  2. PERCOCET [Concomitant]
     Dates: start: 20060101
  3. VITAMIN TAB [Concomitant]
  4. AUGMENTIN '125' [Concomitant]
     Dates: start: 20060701
  5. ZOLOFT [Concomitant]

REACTIONS (5)
  - ATRIAL SEPTAL DEFECT [None]
  - CARDIAC DISORDER [None]
  - CARDIAC MURMUR [None]
  - DEVELOPMENTAL DELAY [None]
  - DRUG EXPOSURE DURING PREGNANCY [None]
